FAERS Safety Report 15565828 (Version 2)
Quarter: 2018Q4

REPORT INFORMATION
  Report Type: Spontaneous
  Country: US (occurrence: US)
  Receive Date: 20181030
  Receipt Date: 20181113
  Transmission Date: 20190205
  Serious: Yes (Other)
  Sender: FDA-Public Use
  Company Number: US-PFIZER INC-2018373376

PATIENT
  Age: 39 Year
  Sex: Female
  Weight: 71.2 kg

DRUGS (4)
  1. LYRICA [Suspect]
     Active Substance: PREGABALIN
     Indication: NEURALGIA
     Dosage: 200 MG, 3X/DAY (3 TIMES. ONE IN THE MORNING, EVENING AND NIGHT)
     Route: 048
     Dates: start: 201303
  2. LYRICA [Suspect]
     Active Substance: PREGABALIN
     Indication: DRUG DEPENDENCE
     Dosage: 200 MG, 3X/DAY
     Route: 048
  3. SUBOXONE [Concomitant]
     Active Substance: BUPRENORPHINE HYDROCHLORIDE\NALOXONE HYDROCHLORIDE
     Dosage: 12 MG, DAILY (1 AND HALF A DAY, 8 MG)
     Route: 048
  4. LYRICA [Suspect]
     Active Substance: PREGABALIN
     Indication: FIBROMYALGIA
     Dosage: 200 MG, 3X/DAY (50MG CAPSULES-4 CAPSULES TAKEN BY MOUTH THREE TIMES A DAY)
     Route: 048
     Dates: start: 2013

REACTIONS (9)
  - Blindness [Unknown]
  - Headache [Unknown]
  - Eye contusion [Unknown]
  - Accident [Unknown]
  - Fall [Unknown]
  - Loss of consciousness [Unknown]
  - Drug dependence [Unknown]
  - Upper limb fracture [Unknown]
  - Back pain [Unknown]
